FAERS Safety Report 17900178 (Version 1)
Quarter: 2020Q2

REPORT INFORMATION
  Report Type: Spontaneous
  Country: US (occurrence: US)
  Receive Date: 20200616
  Receipt Date: 20200616
  Transmission Date: 20200714
  Serious: Yes (Hospitalization)
  Sender: FDA-Public Use
  Company Number: None

PATIENT
  Age: 74 Year
  Sex: Female

DRUGS (6)
  1. TOPIRAMATE, MONTELUKAST, FOLIC ACID, SPIRIVA, OXYCODONE, SYMBICORT [Concomitant]
  2. HUMIRA [Suspect]
     Active Substance: ADALIMUMAB
     Indication: CROHN^S DISEASE
     Dosage: ?          OTHER FREQUENCY:ONCE A WEEK;?
     Route: 058
     Dates: start: 20160311
  3. HYDROCHLOROTHIAZIDE, ADVAIR, ATORVASTATIN, ZOLPIDEM, ESCITALOPRAM [Concomitant]
  4. LORAZEPAM, PREDNISONE, LOSARTAN POTASSIUM, METHOCARBAMOL, BACLOFEN [Concomitant]
  5. AIMOVIG, ALBUTEROL [Concomitant]
  6. CIPROFLOXACIN, ASPIRIN LOW DOSE, NEXIUM, BUPROPION [Concomitant]

REACTIONS (1)
  - Foot fracture [None]

NARRATIVE: CASE EVENT DATE: 20200615
